FAERS Safety Report 13114649 (Version 2)
Quarter: 2017Q1

REPORT INFORMATION
  Report Type: Spontaneous
  Country: US (occurrence: US)
  Receive Date: 20170113
  Receipt Date: 20170125
  Transmission Date: 20170428
  Serious: No
  Sender: FDA-Public Use
  Company Number: US-BAYER-2017-007070

PATIENT
  Age: 49 Year
  Sex: Male

DRUGS (4)
  1. LEVITRA [Suspect]
     Active Substance: VARDENAFIL HYDROCHLORIDE TRIHYDRATE
     Indication: ERECTILE DYSFUNCTION
     Dosage: ONE TABLET TWO TO THREE DAYS PER WEEK
     Route: 048
     Dates: end: 20170110
  2. AMBIEN [Concomitant]
     Active Substance: ZOLPIDEM TARTRATE
     Indication: SLEEP DISORDER THERAPY
     Dosage: 10 MG, HS
  3. VICODIN [Concomitant]
     Active Substance: ACETAMINOPHEN\HYDROCODONE BITARTRATE
     Indication: PAIN
     Dosage: 5/3.25 BID; STARTED 12 YEARS AGO
  4. LORAZEPAM. [Concomitant]
     Active Substance: LORAZEPAM
     Indication: ANXIETY
     Dosage: 0.5 MG, BID

REACTIONS (3)
  - Headache [None]
  - Drug ineffective [None]
  - Nasal congestion [None]

NARRATIVE: CASE EVENT DATE: 20170103
